FAERS Safety Report 21104861 (Version 1)
Quarter: 2022Q3

REPORT INFORMATION
  Report Type: Spontaneous
  Country: JP (occurrence: JP)
  Receive Date: 20220720
  Receipt Date: 20220720
  Transmission Date: 20221027
  Serious: Yes (Hospitalization)
  Sender: FDA-Public Use
  Company Number: JP-MYLANLABS-2022M1079419

PATIENT
  Age: 22 Year
  Sex: Male

DRUGS (3)
  1. VANCOMYCIN [Suspect]
     Active Substance: VANCOMYCIN
     Indication: Endocarditis staphylococcal
     Dosage: IN TWO EQUALLY DIVIDED DOSES
     Route: 065
  2. RIFAMPIN [Suspect]
     Active Substance: RIFAMPIN
     Indication: Endocarditis staphylococcal
     Dosage: IN THREE EQUALLY DIVIDED DOSE
     Route: 065
  3. GENTAMICIN [Suspect]
     Active Substance: GENTAMICIN
     Indication: Endocarditis staphylococcal
     Dosage: IN THREE EQUALLY DIVIDED DOSES
     Route: 065

REACTIONS (1)
  - Drug ineffective [Recovered/Resolved]
